FAERS Safety Report 7125524-8 (Version None)
Quarter: 2010Q4

REPORT INFORMATION
  Report Type: 
  Country: None (occurrence: None)
  Receive Date: 20101129
  Receipt Date: 20101118
  Transmission Date: 20110411
  Serious: Yes (Hospitalization, Other)
  Sender: FDA-Public Use
  Company Number: DE-ROCHE-741127

PATIENT
  Sex: Female
  Weight: 74 kg

DRUGS (8)
  1. MYCOPHENOLATE MOFETIL [Suspect]
     Indication: RENAL TRANSPLANT
     Dosage: LAST DOSE PRIOR TO SAE ON 18 OCTOBER 2010.
     Route: 048
     Dates: start: 20100803
  2. MYCOPHENOLATE MOFETIL [Suspect]
     Route: 048
     Dates: start: 20101026
  3. MYCOPHENOLATE MOFETIL [Suspect]
     Dosage: DOSE REDUCED.
     Route: 048
     Dates: start: 20101030, end: 20101104
  4. BASILIXIMAB [Suspect]
     Indication: RENAL TRANSPLANT
     Dosage: FORM: LIQUID.
     Route: 042
     Dates: start: 20100803
  5. TACROLIMUS [Suspect]
     Indication: RENAL TRANSPLANT
     Dosage: LAST DOSE PRIOR TO SAE ON 18 OCTOBER 2010.
     Route: 048
     Dates: start: 20100803
  6. TACROLIMUS [Suspect]
     Dosage: DOSE REDUCED.
     Route: 048
     Dates: start: 20101029, end: 20101105
  7. PREDNISOLONE [Suspect]
     Indication: RENAL TRANSPLANT
     Dosage: LAST DOSE PRIOR TO SAE ON 18 OCTOBER 2010.
     Route: 048
     Dates: start: 20100803
  8. MARCUMAR [Concomitant]
     Dates: start: 20100818, end: 20101025

REACTIONS (2)
  - KIDNEY TRANSPLANT REJECTION [None]
  - LEUKOPENIA [None]
